FAERS Safety Report 4821779-0 (Version None)
Quarter: 2005Q4

REPORT INFORMATION
  Report Type: 
  Country: None (occurrence: None)
  Receive Date: 20051104
  Receipt Date: 20051104
  Transmission Date: 20060501
  Serious: No
  Sender: FDA-Public Use
  Company Number: None

PATIENT
  Sex: Male
  Weight: 88.4514 kg

DRUGS (1)
  1. ALPRAZOLAM [Suspect]
     Dosage: 0.25 MG TID PO
     Route: 048
     Dates: start: 20030901, end: 20030928

REACTIONS (3)
  - DRUG PRESCRIBING ERROR [None]
  - RENAL FAILURE ACUTE [None]
  - WRONG DRUG ADMINISTERED [None]
